FAERS Safety Report 20898958 (Version 4)
Quarter: 2022Q3

REPORT INFORMATION
  Report Type: Spontaneous
  Country: FR (occurrence: FR)
  Receive Date: 20220601
  Receipt Date: 20220725
  Transmission Date: 20221026
  Serious: Yes (Hospitalization, Other)
  Sender: FDA-Public Use
  Company Number: None

PATIENT
  Age: 83 Year
  Sex: Female

DRUGS (43)
  1. VIDAZA [Suspect]
     Active Substance: AZACITIDINE
     Indication: Acute leukaemia
     Dosage: 130 MG, QD (75 MG/M2/DAY)
     Route: 050
     Dates: start: 20200825, end: 20200831
  2. VIDAZA [Suspect]
     Active Substance: AZACITIDINE
     Dosage: UNK, (6TH COURSE)
     Route: 065
     Dates: start: 20210113, end: 20210119
  3. VIDAZA [Suspect]
     Active Substance: AZACITIDINE
     Dosage: UNK, (3RD COURSE)
     Route: 065
     Dates: start: 20201021, end: 20201027
  4. VIDAZA [Suspect]
     Active Substance: AZACITIDINE
     Dosage: UNK, (5TH COURSE)
     Route: 065
     Dates: start: 20201216, end: 20201223
  5. VIDAZA [Suspect]
     Active Substance: AZACITIDINE
     Dosage: UNK, (4TH COURSE)
     Route: 065
     Dates: start: 20201118, end: 20201124
  6. VIDAZA [Suspect]
     Active Substance: AZACITIDINE
     Dosage: UNK, (8TH COURSE)
     Route: 065
     Dates: start: 20210310, end: 20210316
  7. VIDAZA [Suspect]
     Active Substance: AZACITIDINE
     Dosage: UNK, (2ND COURSE)
     Route: 065
     Dates: start: 20200923, end: 20200929
  8. VIDAZA [Suspect]
     Active Substance: AZACITIDINE
     Dosage: UNK, (10TH COURSE)
     Route: 065
     Dates: start: 20210505, end: 20210511
  9. VIDAZA [Suspect]
     Active Substance: AZACITIDINE
     Dosage: UNK, (7TH COURSE)
     Route: 050
     Dates: start: 20210210, end: 20210216
  10. VIDAZA [Suspect]
     Active Substance: AZACITIDINE
     Dosage: UNK, (9TH COURSE)
     Route: 065
     Dates: start: 20210408, end: 20210413
  11. VIDAZA [Suspect]
     Active Substance: AZACITIDINE
     Dosage: 130 MG (DAILY) (75 MG/M2/DAY)
     Route: 058
     Dates: start: 20200825, end: 20200831
  12. PLAVIX [Suspect]
     Active Substance: CLOPIDOGREL BISULFATE
     Indication: Myocardial infarction
     Dosage: 75 MG, QD
     Route: 065
  13. PLAVIX [Suspect]
     Active Substance: CLOPIDOGREL BISULFATE
     Route: 048
  14. PLAVIX [Suspect]
     Active Substance: CLOPIDOGREL BISULFATE
     Route: 048
  15. IVABRADINE [Suspect]
     Active Substance: IVABRADINE
     Indication: Angina pectoris
     Dosage: 10 MG, QD
     Route: 065
  16. IVABRADINE [Suspect]
     Active Substance: IVABRADINE
     Route: 048
  17. BROMAZEPAM [Suspect]
     Active Substance: BROMAZEPAM
     Indication: Anxiety
     Dosage: 6 MG, QD
     Route: 065
  18. BROMAZEPAM [Suspect]
     Active Substance: BROMAZEPAM
     Dosage: 6 MG DAILY
     Route: 048
  19. CANDESARTAN CILEXETIL [Suspect]
     Active Substance: CANDESARTAN CILEXETIL
     Indication: Hypertension
     Dosage: 2 MG, QD
     Route: 065
  20. CANDESARTAN CILEXETIL [Suspect]
     Active Substance: CANDESARTAN CILEXETIL
     Route: 048
  21. ROSUVASTATIN [Suspect]
     Active Substance: ROSUVASTATIN
     Indication: Hypercholesterolaemia
     Route: 048
  22. ONDANSETRON [Suspect]
     Active Substance: ONDANSETRON
     Indication: Antiemetic supportive care
     Route: 042
     Dates: start: 20200825, end: 20210618
  23. ONDANSETRON [Suspect]
     Active Substance: ONDANSETRON
     Dosage: 16 MG, QD (8 MG, BID)
     Route: 065
     Dates: start: 20210310, end: 20210316
  24. ONDANSETRON [Suspect]
     Active Substance: ONDANSETRON
     Dosage: 16 MG, QD (8 MG, BID)
     Route: 065
     Dates: start: 20210408, end: 20210413
  25. ONDANSETRON [Suspect]
     Active Substance: ONDANSETRON
     Dosage: 16 MG, QD (8 MG, BID)
     Route: 065
     Dates: start: 20210113, end: 20210119
  26. ONDANSETRON [Suspect]
     Active Substance: ONDANSETRON
     Dosage: 16 MG, QD (8 MG, BID)
     Route: 065
     Dates: start: 20201108, end: 20201124
  27. ONDANSETRON [Suspect]
     Active Substance: ONDANSETRON
     Dosage: 16 MG, QD (8 MG, BID)
     Route: 065
     Dates: start: 20201216, end: 20201223
  28. ONDANSETRON [Suspect]
     Active Substance: ONDANSETRON
     Dosage: 16 MG, QD (8 MG, BID)
     Route: 065
     Dates: start: 20210505, end: 20210511
  29. ONDANSETRON [Suspect]
     Active Substance: ONDANSETRON
     Dosage: 16 MG, QD (8 MG, BID)
     Route: 065
     Dates: start: 20160210, end: 20160216
  30. ONDANSETRON [Suspect]
     Active Substance: ONDANSETRON
     Dosage: 16 MG, QD (8 MG, BID)
     Route: 065
     Dates: start: 20211021, end: 20211027
  31. ONDANSETRON [Suspect]
     Active Substance: ONDANSETRON
     Dosage: 16 MG, QD (8 MG, BID)
     Route: 065
     Dates: start: 20210210, end: 20210216
  32. ONDANSETRON [Suspect]
     Active Substance: ONDANSETRON
     Route: 065
     Dates: start: 20210618
  33. ONDANSETRON [Suspect]
     Active Substance: ONDANSETRON
     Route: 065
     Dates: start: 20210617
  34. LEVOTHYROXINE SODIUM [Suspect]
     Active Substance: LEVOTHYROXINE SODIUM
     Indication: Hypothyroidism
     Dosage: 75 UG, (DAILY)
     Route: 048
  35. LEVOTHYROXINE SODIUM [Suspect]
     Active Substance: LEVOTHYROXINE SODIUM
     Route: 048
  36. VALACYCLOVIR HYDROCHLORIDE [Concomitant]
     Active Substance: VALACYCLOVIR HYDROCHLORIDE
     Indication: Antiviral prophylaxis
     Dosage: 1 G, QD
     Dates: start: 20200817
  37. VALACYCLOVIR HYDROCHLORIDE [Concomitant]
     Active Substance: VALACYCLOVIR HYDROCHLORIDE
     Dosage: 1 G, QD
     Dates: start: 20200812
  38. PANTOPRAZOLE [Concomitant]
     Active Substance: PANTOPRAZOLE
     Indication: Gastrooesophageal reflux disease
     Dosage: 40 MG, DAILY
  39. PANTOPRAZOLE [Concomitant]
     Active Substance: PANTOPRAZOLE
     Dosage: 40 MG, QD
  40. PANTOPRAZOLE [Concomitant]
     Active Substance: PANTOPRAZOLE
     Dosage: 40 MG QD
     Route: 065
  41. PANTOPRAZOLE [Concomitant]
     Active Substance: PANTOPRAZOLE
     Dosage: 40 MG, QD
  42. CYTARABINE [Concomitant]
     Active Substance: CYTARABINE
     Indication: Product used for unknown indication
     Dosage: 50 MG, (MORNING AND EVENING FROM 5 DAYS)
  43. XYLOCAINE [Concomitant]
     Active Substance: LIDOCAINE HYDROCHLORIDE
     Indication: Product used for unknown indication
     Dosage: 1 ML?10 MG/ML

REACTIONS (5)
  - Agranulocytosis [Unknown]
  - Urticaria [Not Recovered/Not Resolved]
  - Rash [Unknown]
  - Angioedema [Recovered/Resolved]
  - Bronchospasm [Recovered/Resolved]

NARRATIVE: CASE EVENT DATE: 20201005
